FAERS Safety Report 25526346 (Version 2)
Quarter: 2025Q4

REPORT INFORMATION
  Report Type: Report from Study
  Country: US (occurrence: US)
  Receive Date: 20250707
  Receipt Date: 20251010
  Transmission Date: 20260119
  Serious: Yes (Other)
  Sender: PARATEK PHARMACEUTICALS
  Company Number: US-PARATEK PHARMACEUTICALS, INC.-2025PTK00789

PATIENT
  Sex: Female
  Weight: 136.96 kg

DRUGS (21)
  1. NUZYRA [Suspect]
     Active Substance: OMADACYCLINE
     Indication: Skin infection
     Dosage: 150 MG; [FREQUENCY REPORTED AS 30 TABLETS]
     Route: 048
     Dates: start: 20250527, end: 20250610
  2. NUZYRA [Suspect]
     Active Substance: OMADACYCLINE
     Indication: Staphylococcal infection
  3. UNSPECIFIED INGREDIENT [Concomitant]
     Active Substance: UNSPECIFIED INGREDIENT
  4. LEVOTHYROXINE [Concomitant]
     Active Substance: LEVOTHYROXINE
  5. UNSPECIFIED INGREDIENT [Concomitant]
     Active Substance: UNSPECIFIED INGREDIENT
  6. UNSPECIFIED ARTHRITIS MEDICINE [Concomitant]
  7. ALLOPURINOL [Concomitant]
     Active Substance: ALLOPURINOL
  8. BUPROPION [Concomitant]
     Active Substance: BUPROPION
  9. BUSPIRONE [Concomitant]
     Active Substance: BUSPIRONE HYDROCHLORIDE
  10. CELECOXIB [Concomitant]
     Active Substance: CELECOXIB
  11. COLCHICINE [Concomitant]
     Active Substance: COLCHICINE
  12. GABAPENTIN [Concomitant]
     Active Substance: GABAPENTIN
  13. GLIPIZIDE [Concomitant]
     Active Substance: GLIPIZIDE
  14. LEVOTHYROXINE [Concomitant]
     Active Substance: LEVOTHYROXINE
  15. LISINOPRIL [Concomitant]
     Active Substance: LISINOPRIL
  16. METFORMIN [Concomitant]
     Active Substance: METFORMIN HYDROCHLORIDE
  17. METOPROLOL [Concomitant]
     Active Substance: METOPROLOL
  18. OXYCODONE [Concomitant]
     Active Substance: OXYCODONE
  19. QUETIAPINE [Concomitant]
     Active Substance: QUETIAPINE
  20. TIZANIDINE [Concomitant]
     Active Substance: TIZANIDINE
  21. VOLTAREN [Concomitant]
     Active Substance: DICLOFENAC SODIUM

REACTIONS (4)
  - Idiopathic intracranial hypertension [Not Recovered/Not Resolved]
  - Blood pressure increased [Not Recovered/Not Resolved]
  - Headache [Not Recovered/Not Resolved]
  - Hypersensitivity [Unknown]

NARRATIVE: CASE EVENT DATE: 20250101
